FAERS Safety Report 13257593 (Version 1)
Quarter: 2017Q1

REPORT INFORMATION
  Report Type: Spontaneous
  Country: DE (occurrence: DE)
  Receive Date: 20170221
  Receipt Date: 20170221
  Transmission Date: 20170428
  Serious: Yes (Hospitalization)
  Sender: FDA-Public Use
  Company Number: PHHY2017DE025191

PATIENT
  Age: 12 Year
  Sex: Male

DRUGS (1)
  1. VOTUBIA [Suspect]
     Active Substance: EVEROLIMUS
     Indication: ASTROCYTOMA, LOW GRADE
     Dosage: UNK
     Route: 065
     Dates: start: 2013, end: 201701

REACTIONS (9)
  - C-reactive protein increased [Unknown]
  - Infection [Unknown]
  - Rash [Unknown]
  - Rash pustular [Unknown]
  - Aphthous ulcer [Unknown]
  - Depressed level of consciousness [Unknown]
  - Fungal infection [Unknown]
  - Poisoning [Unknown]
  - Erythema [Unknown]
